FAERS Safety Report 8906873 (Version 1)
Quarter: 2012Q4

REPORT INFORMATION
  Report Type: 
  Country: US (occurrence: US)
  Receive Date: 20121114
  Receipt Date: 20121114
  Transmission Date: 20130627
  Serious: Yes (Hospitalization)
  Sender: FDA-Public Use
  Company Number: US-ELI_LILLY_AND_COMPANY-US201211001017

PATIENT
  Sex: Female

DRUGS (2)
  1. FORTEO [Suspect]
     Indication: OSTEOPOROSIS
     Dosage: 20 ug, qd
     Dates: start: 201205, end: 201206
  2. CALCIUM [Concomitant]
     Dosage: UNK
     Dates: end: 201206

REACTIONS (2)
  - Gastric ulcer [Not Recovered/Not Resolved]
  - Hypophagia [Unknown]
